FAERS Safety Report 16900227 (Version 1)
Quarter: 2019Q4

REPORT INFORMATION
  Report Type: Spontaneous
  Country: US (occurrence: US)
  Receive Date: 20191009
  Receipt Date: 20191009
  Transmission Date: 20200122
  Serious: No
  Sender: FDA-Public Use
  Company Number: US-BAYER-2019-174590

PATIENT
  Age: 90 Year
  Sex: Male

DRUGS (4)
  1. OXYCONTIN [Concomitant]
     Active Substance: OXYCODONE HYDROCHLORIDE
  2. MIRALAX [Suspect]
     Active Substance: POLYETHYLENE GLYCOL 3350
     Indication: CONSTIPATION
     Route: 048
  3. SENNA [SENNA SPP.] [Concomitant]
     Indication: CONSTIPATION
  4. OXYCODONE [Concomitant]
     Active Substance: OXYCODONE

REACTIONS (1)
  - Therapeutic product effect incomplete [Unknown]
